FAERS Safety Report 6351425-9 (Version None)
Quarter: 2009Q3

REPORT INFORMATION
  Report Type: 
  Country: None (occurrence: None)
  Receive Date: 20090912
  Receipt Date: 20090622
  Transmission Date: 20100115
  Serious: Yes (Other)
  Sender: FDA-Public Use
  Company Number: US-ABBOTT-07P-163-0417194-00

PATIENT
  Sex: Female
  Weight: 52.664 kg

DRUGS (8)
  1. HUMIRA [Suspect]
     Indication: RHEUMATOID ARTHRITIS
     Route: 058
     Dates: start: 20040101
  2. HUMIRA [Suspect]
     Indication: PSORIASIS
     Route: 058
  3. BENZTROPINE MESYLATE [Concomitant]
     Indication: TREMOR
     Route: 048
     Dates: start: 20000101
  4. ETODOLAC [Concomitant]
     Indication: PAIN
     Route: 048
     Dates: start: 20050101
  5. RANITIDINE HYDROCHLORIDE [Concomitant]
     Indication: GASTRIC DISORDER
     Route: 048
     Dates: start: 20050101
  6. LISINOPRIL [Concomitant]
     Indication: HYPERTENSION
     Route: 048
     Dates: start: 20050101
  7. ESCITALOPRAM OXALATE [Concomitant]
     Indication: BIPOLAR DISORDER
     Route: 048
     Dates: start: 20070826
  8. ARIPIPRAZOLE [Concomitant]
     Indication: BIPOLAR DISORDER
     Route: 048
     Dates: start: 20030101

REACTIONS (5)
  - INCORRECT DOSE ADMINISTERED [None]
  - LUNG NEOPLASM MALIGNANT [None]
  - MALIGNANT MELANOMA [None]
  - TREATMENT NONCOMPLIANCE [None]
  - WEIGHT DECREASED [None]
